FAERS Safety Report 5660948-7 (Version None)
Quarter: 2008Q1

REPORT INFORMATION
  Report Type: 
  Country: None (occurrence: None)
  Receive Date: 20080311
  Receipt Date: 20080228
  Transmission Date: 20080703
  Serious: Yes (Death, Life-Threatening, Hospitalization, Disabling)
  Sender: FDA-Public Use
  Company Number: GB-PFIZER INC-2006103129

PATIENT
  Age: 76 Year
  Sex: Male
  Weight: 76.2 kg

DRUGS (11)
  1. LYRICA [Suspect]
     Indication: NEURALGIA
     Route: 048
     Dates: start: 20060501, end: 20060702
  2. ASPIRIN [Concomitant]
     Route: 065
  3. FLUDROCORTISONE ACETATE [Concomitant]
     Route: 065
  4. LANSOPRAZOLE [Concomitant]
     Route: 065
  5. MOVICOL [Concomitant]
     Route: 065
  6. ALBUTEROL [Concomitant]
     Route: 055
  7. ANTI-ASTHMATICS [Concomitant]
     Route: 055
  8. SIMVASTATIN [Concomitant]
     Route: 065
  9. TEMAZEPAM [Concomitant]
     Route: 065
     Dates: end: 20060614
  10. TIOTROPIUM BROMIDE [Concomitant]
     Route: 055
  11. TOLTERODINE TARTRATE [Concomitant]
     Route: 065

REACTIONS (2)
  - HYPERCAPNIA [None]
  - LOSS OF CONSCIOUSNESS [None]
